FAERS Safety Report 10136356 (Version 1)
Quarter: 2014Q2

REPORT INFORMATION
  Report Type: Spontaneous
  Country: FI (occurrence: FI)
  Receive Date: 20140429
  Receipt Date: 20140429
  Transmission Date: 20141212
  Serious: Yes (Hospitalization)
  Sender: FDA-Public Use
  Company Number: FI-ACCORD-023394

PATIENT
  Age: 75 Year
  Sex: Male

DRUGS (2)
  1. GEMCITABINE ACCORD [Suspect]
     Indication: BLADDER CANCER
     Route: 042
     Dates: start: 20131114, end: 20140116
  2. CISPLATIN [Concomitant]

REACTIONS (2)
  - Dyspnoea [Not Recovered/Not Resolved]
  - Computerised tomogram thorax abnormal [Not Recovered/Not Resolved]
